FAERS Safety Report 4663170-6 (Version None)
Quarter: 2005Q2

REPORT INFORMATION
  Report Type: 
  Country: None (occurrence: None)
  Receive Date: 20050513
  Receipt Date: 20050502
  Transmission Date: 20051028
  Serious: Yes (Other)
  Sender: FDA-Public Use
  Company Number: 2005069217

PATIENT
  Age: 78 Year
  Sex: Female
  Weight: 52.6173 kg

DRUGS (7)
  1. ZITHROMAX [Suspect]
     Indication: INFLUENZA
     Dosage: (250 MG, 1 IN 1 D), ORAL
     Route: 048
     Dates: start: 20050406
  2. ESOMEPRAZOLE (ESOMEPORAZOLE) [Concomitant]
  3. LOTREL [Concomitant]
  4. CLOPIDOGREL BISULFATE [Concomitant]
  5. PAROXETINE HCL [Concomitant]
  6. ATORVASTATIN CALCIUM [Concomitant]
  7. VITAMINS (VITAMINS) [Concomitant]

REACTIONS (5)
  - AURICULAR SWELLING [None]
  - DEAFNESS UNILATERAL [None]
  - EMOTIONAL DISTRESS [None]
  - INNER EAR DISORDER [None]
  - VISUAL ACUITY REDUCED [None]
